FAERS Safety Report 9363113 (Version 1)
Quarter: 2013Q2

REPORT INFORMATION
  Report Type: Spontaneous
  Country: US (occurrence: None)
  Receive Date: 20130621
  Receipt Date: 20130621
  Transmission Date: 20140414
  Serious: Yes (Other)
  Sender: FDA-Public Use
  Company Number: None

PATIENT
  Sex: Female
  Weight: 57 kg

DRUGS (1)
  1. REMBRANDT 2-HOUR WHITE KIT [Suspect]
     Dosage: UNK, 1XDAY FOR 2HRS, DENTAL
     Route: 004
     Dates: start: 20130531, end: 20130531

REACTIONS (4)
  - Gingival swelling [None]
  - Gingival discolouration [None]
  - Gingival pain [None]
  - Hypophagia [None]
